FAERS Safety Report 12464449 (Version 1)
Quarter: 2016Q2

REPORT INFORMATION
  Report Type: Spontaneous
  Country: US (occurrence: US)
  Receive Date: 20160614
  Receipt Date: 20160614
  Transmission Date: 20160815
  Serious: No
  Sender: FDA-Public Use
  Company Number: US-BAYER-2016-115833

PATIENT
  Age: 74 Year
  Sex: Female
  Weight: 66.21 kg

DRUGS (1)
  1. MIRALAX [Suspect]
     Active Substance: POLYETHYLENE GLYCOL 3350
     Indication: CONSTIPATION PROPHYLAXIS
     Dosage: 1 DF, QD
     Route: 048
     Dates: start: 201509

REACTIONS (3)
  - Muscle spasms [Not Recovered/Not Resolved]
  - Product use issue [None]
  - Product use issue [None]

NARRATIVE: CASE EVENT DATE: 201509
